APPROVED DRUG PRODUCT: PUR-WASH
Active Ingredient: PURIFIED WATER
Strength: 98.3%
Dosage Form/Route: SOLUTION;OPHTHALMIC
Application: N022305 | Product #001
Applicant: NIAGARA PHARMACEUTICALS INC
Approved: Sep 1, 2011 | RLD: Yes | RS: Yes | Type: OTC